FAERS Safety Report 5064671-1 (Version None)
Quarter: 2006Q3

REPORT INFORMATION
  Report Type: 
  Country: None (occurrence: None)
  Receive Date: 20060728
  Receipt Date: 20060609
  Transmission Date: 20061208
  Serious: Yes (Other)
  Sender: FDA-Public Use
  Company Number: CA-GLAXOSMITHKLINE-A0608678A

PATIENT
  Age: 50 Year
  Sex: Male

DRUGS (2)
  1. PAXIL CR [Suspect]
     Indication: DEPRESSION
     Dosage: 25MG PER DAY
     Route: 048
     Dates: start: 20060412
  2. VOLTAREN [Suspect]
     Indication: BACK PAIN
     Dosage: 75MG PER DAY
     Route: 048
     Dates: start: 20060412, end: 20060530

REACTIONS (2)
  - DRUG INTERACTION [None]
  - SLEEP ATTACKS [None]
